FAERS Safety Report 25971026 (Version 1)
Quarter: 2025Q4

REPORT INFORMATION
  Report Type: Spontaneous
  Country: US (occurrence: None)
  Receive Date: 20251028
  Receipt Date: 20251028
  Transmission Date: 20260117
  Serious: Yes (unspecified)
  Sender: FDA-CTU
  Company Number: None

PATIENT
  Age: 43 Year
  Sex: Female
  Weight: 104 kg

DRUGS (1)
  1. TENECTEPLASE [Suspect]
     Active Substance: TENECTEPLASE
     Dosage: 25 MG ONCE INTRAVENOUS BOLUS
     Route: 040

REACTIONS (2)
  - Angioedema [None]
  - Cerebral artery occlusion [None]

NARRATIVE: CASE EVENT DATE: 20251020
